FAERS Safety Report 12681000 (Version 1)
Quarter: 2016Q3

REPORT INFORMATION
  Report Type: Spontaneous
  Country: CH (occurrence: CH)
  Receive Date: 20160824
  Receipt Date: 20160824
  Transmission Date: 20161109
  Serious: Yes (Other)
  Sender: FDA-Public Use
  Company Number: CH-AMGEN-CHESP2016108115

PATIENT
  Age: 67 Year
  Sex: Female
  Weight: 51 kg

DRUGS (4)
  1. CALCIMAGON D3 [Concomitant]
     Active Substance: CALCIUM\CHOLECALCIFEROL
     Dosage: 2 TABLET/DAY
     Route: 048
  2. DUROGESIC [Concomitant]
     Active Substance: FENTANYL
     Dosage: 300 MUG, PER 1 HOUR
     Route: 058
  3. HERCEPTIN [Concomitant]
     Active Substance: TRASTUZUMAB
     Dosage: 6 MG/KG, Q3WK
     Route: 042
     Dates: start: 20140121, end: 20160802
  4. XGEVA [Suspect]
     Active Substance: DENOSUMAB
     Indication: BREAST CANCER METASTATIC
     Dosage: 120 MG, Q6WK
     Route: 058
     Dates: start: 20140212, end: 20160329

REACTIONS (1)
  - Osteonecrosis of jaw [Unknown]

NARRATIVE: CASE EVENT DATE: 2016
